FAERS Safety Report 10785252 (Version 1)
Quarter: 2015Q1

REPORT INFORMATION
  Report Type: Spontaneous
  Country: US (occurrence: US)
  Receive Date: 20150211
  Receipt Date: 20150211
  Transmission Date: 20150721
  Serious: Yes (Other)
  Sender: FDA-Public Use
  Company Number: US-SUN PHARMACEUTICAL INDUSTRIES LTD-2015SUN00341

PATIENT

DRUGS (5)
  1. CARBIDOPA AND LEVODOPA [Suspect]
     Active Substance: CARBIDOPA\LEVODOPA
     Indication: PARKINSON^S DISEASE
     Dosage: PREOP: DISSOLVABLE 3 TABLETS FOUR TIMES DAILY + CONTROLLED RELEASE 1 TABLET AT NIGHT TIME
     Route: 065
  2. CARBIDOPA AND LEVODOPA [Suspect]
     Active Substance: CARBIDOPA\LEVODOPA
     Dosage: POSTOP: DISSOLVABLE TWO AND HALF TABLETS EVERY 3 H AND CONTROLLED RELEASED ONE TABLET AT NIGHT,
     Route: 065
  3. BENZTROPINE [Concomitant]
     Active Substance: BENZTROPINE
     Indication: PARKINSON^S DISEASE
     Dosage: 1 MG, BID
     Route: 065
  4. ROPINIROLE. [Concomitant]
     Active Substance: ROPINIROLE
     Indication: PARKINSON^S DISEASE
     Dosage: 4 MG, QID
  5. ROPINIROLE. [Concomitant]
     Active Substance: ROPINIROLE
     Dosage: 1 MG, BID

REACTIONS (7)
  - Self-medication [None]
  - Drug dependence [None]
  - Dopamine dysregulation syndrome [Recovered/Resolved]
  - Anhedonia [None]
  - Extra dose administered [None]
  - Depression [None]
  - Obsessive-compulsive disorder [None]
